FAERS Safety Report 9183907 (Version 1)
Quarter: 2012Q4

REPORT INFORMATION
  Report Type: 
  Country: US (occurrence: US)
  Receive Date: 20121101
  Receipt Date: 20121101
  Transmission Date: 20130627
  Serious: Yes (Other)
  Sender: FDA-Public Use
  Company Number: US-PFIZER INC-2012258312

PATIENT
  Age: 61 Year
  Sex: Male

DRUGS (1)
  1. LIPITOR [Suspect]
     Dosage: 40 mg, 1x/day
     Route: 048
     Dates: start: 20070524, end: 20120707

REACTIONS (5)
  - Renal failure chronic [Unknown]
  - Coronary artery disease [Unknown]
  - Lung disorder [Unknown]
  - Arthritis [Unknown]
  - Scrotal disorder [Unknown]
